FAERS Safety Report 7427664-2 (Version None)
Quarter: 2011Q2

REPORT INFORMATION
  Report Type: 
  Country: None (occurrence: None)
  Receive Date: 20110411
  Receipt Date: 20110328
  Transmission Date: 20111010
  Serious: Yes (Death)
  Sender: FDA-Public Use
  Company Number: 2011001431

PATIENT
  Age: 82 Year
  Sex: Female

DRUGS (1)
  1. TARCEVA [Suspect]
     Indication: LUNG NEOPLASM MALIGNANT
     Dosage: (150 MG,DAILY) , ORAL
     Route: 048
     Dates: start: 20101230

REACTIONS (1)
  - PULMONARY EMBOLISM [None]
